FAERS Safety Report 12110103 (Version 1)
Quarter: 2016Q1

REPORT INFORMATION
  Report Type: Report from Study
  Country: ZA (occurrence: ZA)
  Receive Date: 20160224
  Receipt Date: 20160224
  Transmission Date: 20160526
  Serious: Yes (Other)
  Sender: FDA-Public Use
  Company Number: PHHY2016ZA022817

PATIENT
  Sex: Female

DRUGS (9)
  1. FORTUM//CEFTAZIDIME [Concomitant]
     Dosage: UNK
     Route: 065
     Dates: start: 20150827
  2. FORTUM//CEFTAZIDIME [Concomitant]
     Dosage: UNK
     Route: 065
     Dates: start: 20151217
  3. FORTUM//CEFTAZIDIME [Concomitant]
     Dosage: UNK
  4. FORTUM//CEFTAZIDIME [Concomitant]
     Indication: PRODUCT USED FOR UNKNOWN INDICATION
     Route: 065
     Dates: start: 20150803
  5. FORTUM//CEFTAZIDIME [Concomitant]
     Dosage: UNK
     Route: 065
     Dates: start: 20150922
  6. TOBI [Suspect]
     Active Substance: TOBRAMYCIN
     Indication: CYSTIC FIBROSIS
     Dosage: 300 MG, BID (3 MONTHS)
     Route: 065
  7. AMIKACIN [Suspect]
     Active Substance: AMIKACIN
     Indication: PRODUCT USED FOR UNKNOWN INDICATION
     Dosage: UNK
     Route: 055
  8. FORTUM//CEFTAZIDIME [Concomitant]
     Dosage: UNK
     Route: 065
     Dates: start: 20160111
  9. FORTUM//CEFTAZIDIME [Concomitant]
     Dosage: UNK
     Route: 065
     Dates: start: 20160208

REACTIONS (8)
  - Pseudomonas infection [Unknown]
  - Dysphonia [Unknown]
  - Burkholderia cepacia complex infection [Unknown]
  - Lower respiratory tract inflammation [Unknown]
  - Bronchiectasis [Unknown]
  - Candida infection [Unknown]
  - Bronchospasm [Unknown]
  - Syncope [Unknown]
